FAERS Safety Report 9602594 (Version 1)
Quarter: 2013Q4

REPORT INFORMATION
  Report Type: Spontaneous
  Country: AU (occurrence: AU)
  Receive Date: 20131007
  Receipt Date: 20131007
  Transmission Date: 20140711
  Serious: Yes (Death)
  Sender: FDA-Public Use
  Company Number: AU-SA-2013SA097577

PATIENT
  Sex: 0

DRUGS (1)
  1. TAXOTERE [Suspect]
     Indication: OESOPHAGEAL ADENOCARCINOMA METASTATIC
     Dosage: STRENGTH: 143 MG
     Route: 065

REACTIONS (1)
  - Death [Fatal]
